FAERS Safety Report 23772035 (Version 1)
Quarter: 2024Q2

REPORT INFORMATION
  Report Type: Spontaneous
  Country: FR (occurrence: FR)
  Receive Date: 20240423
  Receipt Date: 20240423
  Transmission Date: 20240717
  Serious: Yes (Other)
  Sender: FDA-Public Use
  Company Number: None

PATIENT
  Age: 59 Year
  Sex: Male
  Weight: 72 kg

DRUGS (3)
  1. ARAVA [Suspect]
     Active Substance: LEFLUNOMIDE
     Indication: Rheumatoid arthritis
     Dosage: 20 MG, QD
     Route: 048
     Dates: start: 201308, end: 202305
  2. FLURBIPROFEN [Concomitant]
     Active Substance: FLURBIPROFEN
     Indication: Rheumatoid arthritis
     Dosage: UNK
     Route: 048
     Dates: start: 2012
  3. KERLONE [Concomitant]
     Active Substance: BETAXOLOL HYDROCHLORIDE
     Indication: Hypertension
     Dosage: UNK
     Dates: start: 2006

REACTIONS (1)
  - Clear cell renal cell carcinoma [Recovered/Resolved]

NARRATIVE: CASE EVENT DATE: 20221203
